FAERS Safety Report 4708899-6 (Version None)
Quarter: 2005Q3

REPORT INFORMATION
  Report Type: 
  Country: None (occurrence: None)
  Receive Date: 20050707
  Receipt Date: 20041130
  Transmission Date: 20060218
  Serious: Yes (Life-Threatening)
  Sender: FDA-Public Use
  Company Number: JP-MERCK-0412USA00386

PATIENT
  Age: 6 Year
  Sex: Female
  Weight: 26 kg

DRUGS (10)
  1. DECADRON [Suspect]
     Indication: CHEMOTHERAPY
     Route: 048
     Dates: start: 20041013, end: 20041029
  2. ADRIACIN [Concomitant]
     Indication: CHEMOTHERAPY
     Route: 042
     Dates: start: 20041027, end: 20041027
  3. ADRIACIN [Concomitant]
     Route: 042
     Dates: start: 20041013, end: 20041013
  4. ONCOVIN [Concomitant]
     Indication: CHEMOTHERAPY
     Route: 051
     Dates: start: 20041027, end: 20041027
  5. ONCOVIN [Concomitant]
     Route: 051
     Dates: start: 20041013, end: 20041013
  6. LEUNASE [Concomitant]
     Indication: CHEMOTHERAPY
     Route: 051
     Dates: start: 20041027, end: 20041027
  7. BAKTAR [Concomitant]
     Indication: INFECTION PROPHYLAXIS
     Route: 048
     Dates: start: 20040830
  8. DIFLUCAN [Concomitant]
     Indication: INFECTION PROPHYLAXIS
     Route: 048
     Dates: start: 20040830
  9. POLYMYXIN B SULFATE [Concomitant]
     Indication: INFECTION PROPHYLAXIS
     Route: 048
     Dates: start: 20040830
  10. SELBEX [Concomitant]
     Indication: GASTRITIS
     Route: 048
     Dates: start: 20041013, end: 20041029

REACTIONS (2)
  - HYPERTENSION [None]
  - HYPERTENSIVE ENCEPHALOPATHY [None]
